FAERS Safety Report 5909457-8 (Version None)
Quarter: 2008Q4

REPORT INFORMATION
  Report Type: 
  Country: None (occurrence: None)
  Receive Date: 20081006
  Receipt Date: 20080925
  Transmission Date: 20090506
  Serious: Yes (Other)
  Sender: FDA-Public Use
  Company Number: CA-PFIZER INC-2008081893

PATIENT
  Age: 47 Year
  Sex: Female

DRUGS (2)
  1. LYRICA [Suspect]
     Route: 048
     Dates: start: 20080201
  2. HYDROCHLOROTHIAZIDE [Concomitant]

REACTIONS (1)
  - RETINAL DETACHMENT [None]
